FAERS Safety Report 20669761 (Version 1)
Quarter: 2022Q2

REPORT INFORMATION
  Report Type: Spontaneous
  Country: HN (occurrence: HN)
  Receive Date: 20220404
  Receipt Date: 20220404
  Transmission Date: 20220721
  Serious: Yes (Hospitalization, Other)
  Sender: FDA-Public Use
  Company Number: HN-PFIZER INC-202200467490

PATIENT
  Age: 60 Year
  Sex: Male

DRUGS (1)
  1. LIPITOR [Suspect]
     Active Substance: ATORVASTATIN CALCIUM
     Dosage: 1 DF (PILL), DAILY
     Route: 048
     Dates: start: 202110

REACTIONS (3)
  - Cerebrovascular accident [Unknown]
  - Musculoskeletal disorder [Unknown]
  - Memory impairment [Unknown]
